FAERS Safety Report 8936328 (Version 1)
Quarter: 2012Q4

REPORT INFORMATION
  Report Type: 
  Country: JP (occurrence: JP)
  Receive Date: 20121130
  Receipt Date: 20121130
  Transmission Date: 20130627
  Serious: Yes (Other)
  Sender: FDA-Public Use
  Company Number: JP-B.I. PHARMACEUTICALS,INC./RIDGEFIELD-2012-BI-01200NB

PATIENT
  Age: 67 Year
  Sex: Male

DRUGS (2)
  1. MICAMLO COMBINATION [Suspect]
     Indication: HYPERTENSION
     Route: 048
     Dates: start: 20121026, end: 20121114
  2. MICARDIS [Suspect]
     Indication: HYPERTENSION
     Route: 048

REACTIONS (4)
  - Hepatic function abnormal [Not Recovered/Not Resolved]
  - Jaundice [Unknown]
  - Blood potassium increased [Not Recovered/Not Resolved]
  - Blood pressure increased [Unknown]
